FAERS Safety Report 5884102-9 (Version None)
Quarter: 2008Q3

REPORT INFORMATION
  Report Type: 
  Country: None (occurrence: None)
  Receive Date: 20080915
  Receipt Date: 20080908
  Transmission Date: 20090109
  Serious: Yes (Hospitalization)
  Sender: FDA-Public Use
  Company Number: BE-WYE-G02122808

PATIENT
  Age: 61 Year
  Sex: Male

DRUGS (1)
  1. TEMSIROLIMUS [Suspect]
     Indication: RENAL CANCER METASTATIC
     Dosage: 25 MG WEEKLY
     Route: 042
     Dates: start: 20080429, end: 20080716

REACTIONS (1)
  - DISEASE PROGRESSION [None]
